FAERS Safety Report 4515093-0 (Version None)
Quarter: 2004Q4

REPORT INFORMATION
  Report Type: 
  Country: None (occurrence: None)
  Receive Date: 20041201
  Receipt Date: 20041116
  Transmission Date: 20050328
  Serious: Yes (Hospitalization, Other)
  Sender: FDA-Public Use
  Company Number: GRWYE208317NOV04

PATIENT
  Age: 57 Year
  Sex: Female

DRUGS (10)
  1. ENBREL [Suspect]
     Indication: RHEUMATOID ARTHRITIS
     Route: 058
     Dates: end: 20041112
  2. BEXTRA [Suspect]
     Route: 048
     Dates: end: 20041101
  3. MOXONIDINE [Concomitant]
  4. MEDROL [Concomitant]
  5. LEVOTHYROXINE SODIUM [Concomitant]
  6. SIMVASTATIN [Concomitant]
  7. TRIMEBUTINE [Concomitant]
     Route: 048
  8. ADALAT [Concomitant]
     Route: 048
  9. NORFLOXACIN [Concomitant]
     Route: 048
  10. VOLTAREN [Concomitant]
     Dosage: UNSPECIFIED
     Dates: start: 20040801

REACTIONS (6)
  - ANAEMIA [None]
  - CONDITION AGGRAVATED [None]
  - CYSTITIS ESCHERICHIA [None]
  - HEADACHE [None]
  - HYPERTENSION [None]
  - RENAL FAILURE [None]
